FAERS Safety Report 5557067-7 (Version None)
Quarter: 2007Q4

REPORT INFORMATION
  Report Type: 
  Country: None (occurrence: None)
  Receive Date: 20071211
  Receipt Date: 20071130
  Transmission Date: 20080405
  Serious: Yes (Hospitalization, Other)
  Sender: FDA-Public Use
  Company Number: 2007SP022047

PATIENT
  Age: 60 Year
  Sex: Male

DRUGS (4)
  1. PEG-INTRON [Suspect]
     Indication: HEPATITIS C
     Dosage: 100 MCG; QD; SC
     Route: 058
     Dates: start: 20051109, end: 20070111
  2. REBETOL [Suspect]
     Indication: HEPATITIS C
     Dosage: 800 MG; QD; PO
     Route: 048
     Dates: start: 20051109, end: 20070111
  3. URSO 250 [Concomitant]
  4. DIOVAN [Concomitant]

REACTIONS (8)
  - ANORECTAL DISORDER [None]
  - BLADDER DISORDER [None]
  - CRANIAL NERVE PARALYSIS [None]
  - FACIAL PALSY [None]
  - IMMUNE SYSTEM DISORDER [None]
  - MONONEUROPATHY [None]
  - SARCOIDOSIS [None]
  - VISUAL ACUITY REDUCED [None]
